FAERS Safety Report 8119344-5 (Version None)
Quarter: 2012Q1

REPORT INFORMATION
  Report Type: 
  Country: None (occurrence: None)
  Receive Date: 20120207
  Receipt Date: 20120127
  Transmission Date: 20120608
  Serious: Yes (Hospitalization)
  Sender: FDA-Public Use
  Company Number: GB-MPIJNJ-2012-00673

PATIENT

DRUGS (4)
  1. VELCADE [Suspect]
     Indication: PRODUCT USED FOR UNKNOWN INDICATION
     Route: 065
  2. ADRIAMYCIN PFS [Concomitant]
  3. GABAPENTIN [Concomitant]
  4. DEXAMETHASONE [Concomitant]

REACTIONS (2)
  - MUCOSAL INFLAMMATION [None]
  - NEUROPATHY PERIPHERAL [None]
